FAERS Safety Report 7738748-3 (Version None)
Quarter: 2011Q3

REPORT INFORMATION
  Report Type: 
  Country: None (occurrence: None)
  Receive Date: 20110908
  Receipt Date: 20110825
  Transmission Date: 20111222
  Serious: Yes (Hospitalization, Other)
  Sender: FDA-Public Use
  Company Number: AU-GENENTECH-323745

PATIENT
  Sex: Female

DRUGS (2)
  1. LUCENTIS [Suspect]
     Indication: MACULAR DEGENERATION
     Dosage: 0.5 ML, UNKNOWN
     Route: 031
     Dates: start: 20090301
  2. LUCENTIS [Suspect]
     Dosage: 0.5 ML, UNKNOWN
     Route: 031
     Dates: start: 20110701

REACTIONS (3)
  - AORTIC VALVE DISEASE [None]
  - LETHARGY [None]
  - CHEST PAIN [None]
